FAERS Safety Report 5248937-8 (Version None)
Quarter: 2007Q1

REPORT INFORMATION
  Report Type: 
  Country: None (occurrence: None)
  Receive Date: 20070223
  Receipt Date: 20070223
  Transmission Date: 20070707
  Serious: Yes (Other)
  Sender: FDA-Public Use
  Company Number: 232798

PATIENT
  Age: 38 Year
  Sex: Female
  Weight: 54.3 kg

DRUGS (7)
  1. BEVACIZUMAB OR PLACEBO(BEVACIZUMAB)BEVACIZUMAB OR PLACEBO(BEVACIZUMAB) [Suspect]
     Indication: NON-SMALL CELL LUNG CANCER
     Dosage: 15 MG/KG, Q3W; INTRAVENOUS
     Route: 042
     Dates: start: 20051028, end: 20061115
  2. CISPLATIN [Suspect]
     Indication: NON-SMALL CELL LUNG CANCER
     Dosage: 80 MG/M2 Q3W; INTRAVENOUS
     Route: 042
     Dates: start: 20051028, end: 20060315
  3. GEMCITABINE [Suspect]
     Indication: NON-SMALL CELL LUNG CANCER
     Dosage: 1250 MG/M2, UNK; INTRAVENOUS
     Route: 042
     Dates: start: 20051028, end: 20060322
  4. VENTOLIN (ALBUTEROL/ALBUTEROL SULFATE) [Concomitant]
  5. TYLENOL #3 (CANADA) (ACETAMINOPHEN, CAFFEINE, CODEINE PHOSPHATE) [Concomitant]
  6. TYLENOL #1 (CANADA) (ACETAMINOPHEN, CAFFEINE, CODEINE PHOSPHATE) [Concomitant]
  7. ALTACE [Concomitant]

REACTIONS (4)
  - HEADACHE [None]
  - METASTASES TO CENTRAL NERVOUS SYSTEM [None]
  - VASCULITIS [None]
  - VISUAL DISTURBANCE [None]
